FAERS Safety Report 5856812-0 (Version None)
Quarter: 2008Q3

REPORT INFORMATION
  Report Type: 
  Country: None (occurrence: None)
  Receive Date: 20080821
  Receipt Date: 20080807
  Transmission Date: 20090109
  Serious: Yes (Hospitalization)
  Sender: FDA-Public Use
  Company Number: 2008001950

PATIENT
  Age: 61 Year
  Sex: Female

DRUGS (4)
  1. TARCEVA [Suspect]
     Indication: LUNG ADENOCARCINOMA
     Dosage: (150 MG, QD) ,ORAL; (300 MG, QD) ,ORAL
     Route: 048
  2. METHYLPREDNISOLONE [Suspect]
     Dosage: (120 MG) ,INTRAVENOUS
     Route: 042
  3. STEROID NOS [Suspect]
  4. PREDNISONE [Suspect]
     Dosage: ORAL
     Route: 048

REACTIONS (4)
  - CONFUSIONAL STATE [None]
  - CSF PROTEIN INCREASED [None]
  - METASTASES TO CENTRAL NERVOUS SYSTEM [None]
  - RASH [None]
